FAERS Safety Report 8103435-9 (Version None)
Quarter: 2012Q1

REPORT INFORMATION
  Report Type: 
  Country: None (occurrence: None)
  Receive Date: 20120201
  Receipt Date: 20120126
  Transmission Date: 20120608
  Serious: Yes (Death)
  Sender: FDA-Public Use
  Company Number: CA-PFIZER INC-2012025830

PATIENT
  Age: 63 Year
  Sex: Male
  Weight: 105.21 kg

DRUGS (6)
  1. TAMOXIFEN [Concomitant]
  2. MORPHINE SULFATE [Suspect]
  3. QUININE [Concomitant]
  4. DURAGESIC-100 [Suspect]
     Route: 062
  5. TRAZODONE [Concomitant]
  6. OXYCODONE HCL [Suspect]

REACTIONS (1)
  - TOXICITY TO VARIOUS AGENTS [None]
